FAERS Safety Report 19905410 (Version 1)
Quarter: 2021Q3

REPORT INFORMATION
  Report Type: Spontaneous
  Country: US (occurrence: US)
  Receive Date: 20210930
  Receipt Date: 20210930
  Transmission Date: 20211014
  Serious: Yes (Hospitalization)
  Sender: FDA-Public Use
  Company Number: None

PATIENT
  Sex: Female

DRUGS (2)
  1. TACROLIMUS (STRIDES) 1MG STRIDES PHARMA [Suspect]
     Active Substance: TACROLIMUS
     Indication: STEM CELL TRANSPLANT
     Dosage: OTHER DOSE:2 CAPSULES;?
     Route: 048
     Dates: start: 202101
  2. TACROLIMUS (STRIDES) 1MG STRIDES PHARMA [Suspect]
     Active Substance: TACROLIMUS
     Indication: MYELOFIBROSIS
     Dosage: OTHER DOSE:2 CAPSULES;?
     Route: 048
     Dates: start: 202101

REACTIONS (4)
  - Chills [None]
  - Thrombosis [None]
  - Cerebrovascular accident [None]
  - Myocardial infarction [None]
